FAERS Safety Report 21523960 (Version 1)
Quarter: 2022Q4

REPORT INFORMATION
  Report Type: Spontaneous
  Country: US (occurrence: US)
  Receive Date: 20221029
  Receipt Date: 20221029
  Transmission Date: 20230112
  Serious: Yes (Death, Other)
  Sender: FDA-Public Use
  Company Number: US-SA-SAC20221027001338

PATIENT
  Age: 58 Year
  Sex: Male

DRUGS (1)
  1. ZANTAC [Suspect]
     Active Substance: RANITIDINE HYDROCHLORIDE
     Indication: Dyspepsia
     Dosage: 150 MG, FREQUENCY: OTHER
     Dates: start: 200001, end: 201904

REACTIONS (4)
  - Prostate cancer [Fatal]
  - Bladder cancer [Fatal]
  - Basal cell carcinoma [Fatal]
  - Renal cancer [Fatal]

NARRATIVE: CASE EVENT DATE: 20051007
